FAERS Safety Report 6233033-3 (Version None)
Quarter: 2009Q2

REPORT INFORMATION
  Report Type: 
  Country: None (occurrence: None)
  Receive Date: 20090617
  Receipt Date: 20090616
  Transmission Date: 20091009
  Serious: Yes (Other)
  Sender: FDA-Public Use
  Company Number: B0578729A

PATIENT
  Age: 16 Year
  Sex: Male

DRUGS (1)
  1. MALARONE [Suspect]
     Indication: MALARIA PROPHYLAXIS
     Dosage: 1TAB PER DAY
     Route: 048
     Dates: start: 20080101, end: 20080101

REACTIONS (3)
  - FATIGUE [None]
  - POLYCYTHAEMIA [None]
  - THROMBOCYTHAEMIA [None]
